FAERS Safety Report 8665954 (Version 2)
Quarter: 2012Q4

REPORT INFORMATION
  Report Type: 
  Country: GB (occurrence: GB)
  Receive Date: 20120716
  Receipt Date: 20121119
  Transmission Date: 20130627
  Serious: Yes (Other)
  Sender: FDA-Public Use
  Company Number: PHFR2012GB003968

PATIENT
  Sex: Female

DRUGS (2)
  1. CLOZARIL [Suspect]
     Dosage: UNK UKN, UNK
  2. CLOZARIL [Suspect]
     Dosage: UNK UKN, UNK

REACTIONS (2)
  - Mental impairment [Unknown]
  - Malaise [Recovered/Resolved]
